FAERS Safety Report 7957423-3 (Version None)
Quarter: 2011Q4

REPORT INFORMATION
  Report Type: 
  Country: None (occurrence: None)
  Receive Date: 20111205
  Receipt Date: 20111129
  Transmission Date: 20120403
  Serious: Yes (Other)
  Sender: FDA-Public Use
  Company Number: JP-PFIZER INC-2011287871

PATIENT
  Age: 41 Year
  Sex: Female

DRUGS (5)
  1. CYCLOPHOSPHAMIDE [Suspect]
     Indication: BREAST CANCER
  2. HERCEPTIN [Concomitant]
     Indication: BREAST CANCER
  3. EPIRUBICIN HYDROCHLORIDE [Suspect]
     Indication: BREAST CANCER
     Dosage: UNK
  4. PACLITAXEL [Concomitant]
     Indication: BREAST CANCER
  5. FLUOROURACIL [Suspect]
     Indication: BREAST CANCER

REACTIONS (1)
  - INTERSTITIAL LUNG DISEASE [None]
